FAERS Safety Report 8869474 (Version 2)
Quarter: 2012Q4

REPORT INFORMATION
  Report Type: 
  Country: JP (occurrence: JP)
  Receive Date: 20121028
  Receipt Date: 20121109
  Transmission Date: 20130627
  Serious: Yes (Hospitalization)
  Sender: FDA-Public Use
  Company Number: JP-BAYER-2012-109040

PATIENT
  Age: 65 Year
  Sex: Female

DRUGS (6)
  1. BAYASPIRIN [Suspect]
     Indication: CEREBROVASCULAR ACCIDENT PROPHYLAXIS
     Dosage: UNK
     Route: 048
  2. CLOPIDOGREL SULFATE [Suspect]
     Indication: CEREBROVASCULAR ACCIDENT PROPHYLAXIS
     Dosage: UNK
     Route: 048
  3. UNFRACTIONATED HEPARIN [Suspect]
     Indication: CEREBROVASCULAR ACCIDENT PROPHYLAXIS
     Dosage: Daily dose 6000 u
  4. PHENYLEPHRINE HYDROCHLORIDE [Concomitant]
     Indication: BLOOD PRESSURE DECREASED
     Dosage: UNK
  5. SEVOFLURANE [Concomitant]
     Indication: GENERAL ANESTHESIA
  6. REMIFENTANIL [Suspect]
     Indication: GENERAL ANESTHESIA

REACTIONS (2)
  - Retroperitoneal haematoma [Recovering/Resolving]
  - Shock haemorrhagic [Recovering/Resolving]
